FAERS Safety Report 19660284 (Version 1)
Quarter: 2021Q3

REPORT INFORMATION
  Report Type: Spontaneous
  Country: US (occurrence: US)
  Receive Date: 20210804
  Receipt Date: 20210804
  Transmission Date: 20211014
  Serious: Yes (Hospitalization)
  Sender: FDA-Public Use
  Company Number: None

PATIENT
  Sex: Male

DRUGS (7)
  1. MONTELUKAST [Concomitant]
     Active Substance: MONTELUKAST SODIUM
  2. COLCHICINE. [Concomitant]
     Active Substance: COLCHICINE
  3. STELARA [Suspect]
     Active Substance: USTEKINUMAB
     Indication: CROHN^S DISEASE
     Dosage: EVERY 6 WEEKS
     Route: 058
     Dates: start: 20191206
  4. CYAN OCOBALAM [Concomitant]
  5. LORATADINE. [Concomitant]
     Active Substance: LORATADINE
  6. IBUPROFEN. [Concomitant]
     Active Substance: IBUPROFEN
  7. ELIQUIS [Concomitant]
     Active Substance: APIXABAN

REACTIONS (1)
  - Cardiac disorder [None]
